FAERS Safety Report 7629935-3 (Version None)
Quarter: 2011Q3

REPORT INFORMATION
  Report Type: 
  Country: None (occurrence: None)
  Receive Date: 20110722
  Receipt Date: 20110718
  Transmission Date: 20111222
  Serious: Yes (Other)
  Sender: FDA-Public Use
  Company Number: US-BRISTOL-MYERS SQUIBB COMPANY-15910672

PATIENT
  Sex: Female

DRUGS (4)
  1. ACTOS [Suspect]
  2. GLIPIZIDE [Suspect]
     Route: 065
  3. GLUCOPHAGE [Suspect]
     Route: 065
  4. GLUCOTROL XL [Suspect]
     Route: 065

REACTIONS (3)
  - MALAISE [None]
  - CARDIAC DISORDER [None]
  - DRUG INEFFECTIVE [None]
